FAERS Safety Report 12485237 (Version 1)
Quarter: 2016Q2

REPORT INFORMATION
  Report Type: Spontaneous
  Country: FR (occurrence: FR)
  Receive Date: 20160621
  Receipt Date: 20160621
  Transmission Date: 20160815
  Serious: Yes (Hospitalization)
  Sender: FDA-Public Use
  Company Number: ALCN2016FR004157

PATIENT
  Age: 56 Year
  Sex: Female

DRUGS (5)
  1. TAREG [Concomitant]
     Active Substance: VALSARTAN
     Indication: PRODUCT USED FOR UNKNOWN INDICATION
     Dosage: UNK
     Route: 065
  2. ZALERG [Suspect]
     Active Substance: KETOTIFEN FUMARATE
     Indication: CONJUNCTIVITIS ALLERGIC
     Dosage: UNK
     Route: 047
     Dates: start: 20160405, end: 20160407
  3. VEXOL [Suspect]
     Active Substance: RIMEXOLONE
     Indication: CONJUNCTIVITIS ALLERGIC
     Dosage: UNK
     Route: 047
     Dates: start: 20160405, end: 20160407
  4. CROMABAK [Suspect]
     Active Substance: CROMOLYN SODIUM
     Indication: CONJUNCTIVITIS ALLERGIC
     Dosage: UNK
     Route: 047
     Dates: start: 20160405, end: 20160407
  5. VISMED [Suspect]
     Active Substance: HYALURONATE SODIUM
     Indication: CONJUNCTIVITIS ALLERGIC
     Dosage: UNK
     Route: 047
     Dates: start: 20160405, end: 20160407

REACTIONS (6)
  - Dysphagia [Recovering/Resolving]
  - Generalised erythema [Recovering/Resolving]
  - Dyspnoea [None]
  - Rash pruritic [None]
  - Face oedema [Recovering/Resolving]
  - General physical health deterioration [Recovering/Resolving]

NARRATIVE: CASE EVENT DATE: 20160407
